FAERS Safety Report 15426573 (Version 1)
Quarter: 2018Q3

REPORT INFORMATION
  Report Type: Spontaneous
  Country: US (occurrence: US)
  Receive Date: 20180925
  Receipt Date: 20180925
  Transmission Date: 20181010
  Serious: No
  Sender: FDA-Public Use
  Company Number: US-INDIVIOR LIMITED-INDV-105817-2017

PATIENT
  Age: 66 Year
  Sex: Female

DRUGS (5)
  1. SUBOXONE [Suspect]
     Active Substance: BUPRENORPHINE HYDROCHLORIDE\NALOXONE HYDROCHLORIDE
     Dosage: TOOK HALF OF FILM, UNK
     Route: 060
     Dates: start: 20171026, end: 20171026
  2. SUBOXONE [Suspect]
     Active Substance: BUPRENORPHINE HYDROCHLORIDE\NALOXONE HYDROCHLORIDE
     Indication: DRUG DEPENDENCE
     Dosage: 2 MG, BID
     Route: 060
     Dates: start: 201704
  3. NITROGLYCERIN. [Concomitant]
     Active Substance: NITROGLYCERIN
     Indication: PRODUCT USED FOR UNKNOWN INDICATION
     Dosage: UNK
     Route: 065
  4. SUBOXONE [Suspect]
     Active Substance: BUPRENORPHINE HYDROCHLORIDE\NALOXONE HYDROCHLORIDE
     Dosage: TOOK HALF OF FILM, UNK
     Route: 060
     Dates: start: 20171027, end: 20171027
  5. GABAPENTIN. [Concomitant]
     Active Substance: GABAPENTIN
     Indication: PRODUCT USED FOR UNKNOWN INDICATION
     Dosage: UNK
     Route: 065

REACTIONS (10)
  - Dizziness [Not Recovered/Not Resolved]
  - Product use issue [Recovered/Resolved]
  - Tremor [Unknown]
  - Malaise [Unknown]
  - Confusional state [Unknown]
  - Palpitations [Not Recovered/Not Resolved]
  - Product preparation error [Recovered/Resolved]
  - Therapy cessation [Recovered/Resolved]
  - Hyperhidrosis [Not Recovered/Not Resolved]
  - Intentional underdose [Recovered/Resolved]

NARRATIVE: CASE EVENT DATE: 2017
